FAERS Safety Report 12472611 (Version 1)
Quarter: 2016Q2

REPORT INFORMATION
  Report Type: Report from Study
  Country: BR (occurrence: BR)
  Receive Date: 20160616
  Receipt Date: 20160616
  Transmission Date: 20160815
  Serious: Yes (Death)
  Sender: FDA-Public Use
  Company Number: PHHY2016BR082853

PATIENT
  Sex: Male
  Weight: 80 kg

DRUGS (3)
  1. ONBREZ BREEZHALER [Suspect]
     Active Substance: INDACATEROL
     Indication: LUNG DISORDER
  2. ONBREZ BREEZHALER [Suspect]
     Active Substance: INDACATEROL
     Indication: TUBERCULOSIS
     Dosage: QD
     Route: 055
     Dates: start: 201511
  3. ONBREZ BREEZHALER [Suspect]
     Active Substance: INDACATEROL
     Indication: DIABETES MELLITUS

REACTIONS (2)
  - Condition aggravated [Fatal]
  - Product use issue [Unknown]
